FAERS Safety Report 21570833 (Version 1)
Quarter: 2022Q4

REPORT INFORMATION
  Report Type: Spontaneous
  Country: US (occurrence: None)
  Receive Date: 20221109
  Receipt Date: 20221109
  Transmission Date: 20230113
  Serious: Yes (Life-Threatening)
  Sender: FDA-Public Use
  Company Number: US-MICRO LABS LIMITED-ML2022-05471

PATIENT
  Age: 49 Year
  Sex: Male

DRUGS (6)
  1. APIXABAN [Suspect]
     Active Substance: APIXABAN
     Indication: Cardiac ventricular thrombosis
  2. APIXABAN [Suspect]
     Active Substance: APIXABAN
     Indication: Pulmonary embolism
  3. ENOXAPARIN [Suspect]
     Active Substance: ENOXAPARIN
     Indication: Cardiac ventricular thrombosis
     Route: 058
  4. ENOXAPARIN [Suspect]
     Active Substance: ENOXAPARIN
     Indication: Pulmonary embolism
  5. HEPARIN [Suspect]
     Active Substance: HEPARIN SODIUM
     Indication: Cardiac ventricular thrombosis
     Route: 042
  6. HEPARIN [Suspect]
     Active Substance: HEPARIN SODIUM
     Indication: Pulmonary embolism

REACTIONS (1)
  - Drug ineffective [Unknown]
